FAERS Safety Report 13600771 (Version 1)
Quarter: 2017Q2

REPORT INFORMATION
  Report Type: Report from Study
  Country: US (occurrence: US)
  Receive Date: 20170601
  Receipt Date: 20170601
  Transmission Date: 20170830
  Serious: Yes (Other)
  Sender: FDA-Public Use
  Company Number: PHEH2017US015706

PATIENT
  Sex: Male

DRUGS (3)
  1. IMATINIB MESYLATE. [Suspect]
     Active Substance: IMATINIB MESYLATE
     Indication: PRODUCT USED FOR UNKNOWN INDICATION
     Dosage: 400 MG, QD
     Route: 065
  2. GLEEVEC [Suspect]
     Active Substance: IMATINIB MESYLATE
     Indication: PRODUCT USED FOR UNKNOWN INDICATION
     Dosage: 400 MG, QD
     Route: 065
  3. GLEEVEC [Suspect]
     Active Substance: IMATINIB MESYLATE
     Dosage: UNK
     Route: 065
     Dates: start: 2003

REACTIONS (8)
  - Headache [Unknown]
  - Toothache [Unknown]
  - Fluid retention [Unknown]
  - Rash [Unknown]
  - Peripheral swelling [Unknown]
  - Bone pain [Unknown]
  - Nephrolithiasis [Unknown]
  - Abdominal discomfort [Unknown]
